FAERS Safety Report 6014731-3 (Version None)
Quarter: 2008Q4

REPORT INFORMATION
  Report Type: 
  Country: None (occurrence: None)
  Receive Date: 20081126
  Receipt Date: 20080228
  Transmission Date: 20090506
  Serious: Yes (Other)
  Sender: FDA-Public Use
  Company Number: 168242USA

PATIENT
  Age: 16 Year
  Sex: Male
  Weight: 76 kg

DRUGS (1)
  1. CARBOPLATIN [Suspect]
     Indication: GERM CELL CANCER
     Dosage: 18.6667 MG (560 MG, 1 IN 1 M), INTRAVENOUS DRIP
     Route: 041
     Dates: start: 20071212, end: 20080108

REACTIONS (2)
  - ANXIETY [None]
  - INSOMNIA [None]
